FAERS Safety Report 6152197-3 (Version None)
Quarter: 2009Q2

REPORT INFORMATION
  Report Type: 
  Country: None (occurrence: None)
  Receive Date: 20090410
  Receipt Date: 20080929
  Transmission Date: 20091009
  Serious: No
  Sender: FDA-Public Use
  Company Number: US-ASTRAZENECA-2008UW21007

PATIENT
  Age: 79 Year
  Sex: Female

DRUGS (9)
  1. TENORMIN [Suspect]
     Indication: HYPERTENSION
     Route: 048
     Dates: start: 19880101
  2. TENORMIN [Suspect]
     Route: 048
  3. TENORMIN [Suspect]
     Route: 048
  4. XANAX [Concomitant]
     Dosage: 0.5 MG THREE TIMES A DAY AS NEEDED
  5. ZETIA [Concomitant]
     Dosage: DAILY
  6. LIPITOR [Concomitant]
     Dosage: DAILY
  7. PAXIL [Concomitant]
  8. ASPIRIN [Concomitant]
     Dosage: DAILY
  9. AVAPRO [Concomitant]
     Dosage: DAILY

REACTIONS (1)
  - BLOOD PRESSURE INCREASED [None]
